FAERS Safety Report 7599840-X (Version None)
Quarter: 2011Q3

REPORT INFORMATION
  Report Type: 
  Country: None (occurrence: None)
  Receive Date: 20110711
  Receipt Date: 20110629
  Transmission Date: 20111222
  Serious: Yes (Hospitalization)
  Sender: FDA-Public Use
  Company Number: US-JNJFOC-20110611914

PATIENT
  Sex: Male
  Weight: 48.7 kg

DRUGS (13)
  1. ATIVAN [Concomitant]
  2. OXYCODONE HCL [Concomitant]
  3. ZOFRAN [Concomitant]
  4. ALBUTEROL SULFATE AUTOHALER [Concomitant]
  5. ANTIBIOTICS [Concomitant]
     Indication: INFLAMMATORY BOWEL DISEASE
  6. REMICADE [Suspect]
     Route: 042
     Dates: start: 20110528
  7. MESALAMINE [Concomitant]
     Indication: INFLAMMATORY BOWEL DISEASE
     Route: 048
  8. CALCIUM AND VITAMIN D [Concomitant]
  9. REMICADE [Suspect]
     Indication: CROHN'S DISEASE
     Route: 042
  10. REMICADE [Suspect]
     Route: 042
     Dates: start: 20100823
  11. PRILOSEC [Concomitant]
  12. PREDNISONE [Concomitant]
  13. REMICADE [Suspect]
     Route: 042
     Dates: start: 20110516

REACTIONS (2)
  - SMALL INTESTINAL OBSTRUCTION [None]
  - CROHN'S DISEASE [None]
